FAERS Safety Report 21275361 (Version 1)
Quarter: 2022Q3

REPORT INFORMATION
  Report Type: Spontaneous
  Country: US (occurrence: US)
  Receive Date: 20220831
  Receipt Date: 20220831
  Transmission Date: 20221026
  Serious: Yes (Other)
  Sender: FDA-Public Use
  Company Number: US-MALLINCKRODT-T202204344

PATIENT
  Age: 29 Year
  Sex: Female

DRUGS (14)
  1. NITRIC OXIDE [Suspect]
     Active Substance: NITRIC OXIDE
     Indication: Portopulmonary hypertension
     Dosage: 10-60 PPM, INHALATION
     Route: 055
  2. EPOPROSTENOL [Concomitant]
     Active Substance: EPOPROSTENOL
     Indication: Pulmonary arterial pressure increased
     Dosage: 6-24 NG/KG/MIN
     Route: 042
  3. EPOPROSTENOL [Concomitant]
     Active Substance: EPOPROSTENOL
     Indication: Right ventricular failure
  4. SILDENAFIL [Concomitant]
     Active Substance: SILDENAFIL
     Indication: Pulmonary arterial pressure increased
     Dosage: 10 MILLIGRAM (10 MG X 2)
     Route: 042
  5. MILRINONE [Concomitant]
     Active Substance: MILRINONE
     Indication: Pulmonary arterial pressure increased
     Dosage: 0.25-0.5 MCG/KG/MIN
     Route: 065
  6. MILRINONE [Concomitant]
     Active Substance: MILRINONE
     Indication: Right ventricular failure
  7. EPINEPHRINE [Concomitant]
     Active Substance: EPINEPHRINE
     Indication: Mean arterial pressure increased
     Dosage: 0.01-0.04 MCG/KG/MIN),
     Route: 065
  8. NOREPINEPHRINE [Concomitant]
     Active Substance: NOREPINEPHRINE
     Indication: Mean arterial pressure increased
     Dosage: 0.04-0.6 MCG/KG/MIN
     Route: 065
  9. VASOPRESSIN [Concomitant]
     Active Substance: VASOPRESSIN
     Indication: Mean arterial pressure increased
     Dosage: 0.04-0.12 UNITS/MIN
     Route: 065
  10. ESMOLOL [Concomitant]
     Active Substance: ESMOLOL HYDROCHLORIDE
     Indication: Sinus tachycardia
     Dosage: 0.4-1.1 MCG/KG/MIN
     Route: 065
  11. MACITENTAN [Concomitant]
     Active Substance: MACITENTAN
     Indication: Pulmonary arterial pressure
     Dosage: 10 MILLIGRAM, QD
     Route: 048
  12. MACITENTAN [Concomitant]
     Active Substance: MACITENTAN
     Indication: Right ventricular failure
  13. HEPARIN [Concomitant]
     Active Substance: HEPARIN SODIUM
     Indication: Anticoagulant therapy
     Dosage: 1000 UNITS/H
     Route: 042
  14. HEPARIN [Concomitant]
     Active Substance: HEPARIN SODIUM
     Dosage: 2000 UNITS
     Route: 042

REACTIONS (4)
  - Atrial fibrillation [Unknown]
  - Right ventricular failure [Recovering/Resolving]
  - Respiratory failure [Unknown]
  - Product use issue [Unknown]
